FAERS Safety Report 9187066 (Version 1)
Quarter: 2012Q4

REPORT INFORMATION
  Report Type: 
  Country: US (occurrence: US)
  Receive Date: 20121101
  Receipt Date: 20121101
  Transmission Date: 20130627
  Serious: Yes (Other)
  Sender: FDA-Public Use
  Company Number: US-PFIZER INC-2012267100

PATIENT
  Age: 73 Year
  Sex: Male
  Weight: 111.11 kg

DRUGS (8)
  1. LIPITOR [Suspect]
     Indication: HIGH CHOLESTEROL
     Dosage: 20 mg, 1x/day
     Route: 048
     Dates: start: 2010
  2. JANUVIA [Concomitant]
     Dosage: UNK
  3. ACTOS [Concomitant]
     Dosage: UNK
  4. METFORMIN [Concomitant]
     Dosage: UNK
  5. NORVASC [Concomitant]
     Dosage: UNK
  6. AVALIDE [Concomitant]
     Dosage: UNK
  7. COREG [Concomitant]
     Dosage: UNK
  8. WARFARIN [Concomitant]
     Dosage: UNK

REACTIONS (3)
  - Prostate cancer [Unknown]
  - Blood cholesterol increased [Unknown]
  - Malaise [Unknown]
